FAERS Safety Report 6262664-X (Version None)
Quarter: 2009Q3

REPORT INFORMATION
  Report Type: 
  Country: None (occurrence: None)
  Receive Date: 20090709
  Receipt Date: 20090701
  Transmission Date: 20100115
  Serious: No
  Sender: FDA-Public Use
  Company Number: US-B.I. PHARMACEUTICALS,INC./RIDGEFIELD-2009-BP-07919BP

PATIENT
  Sex: Female

DRUGS (10)
  1. SPIRIVA [Suspect]
     Indication: WHEEZING
     Dosage: 18 MCG
     Route: 055
     Dates: start: 20090620
  2. METFORMIN HCL [Concomitant]
     Indication: DIABETES MELLITUS
  3. ACTOS [Concomitant]
     Indication: DIABETES MELLITUS
  4. FLOVENT [Concomitant]
     Indication: WHEEZING
     Route: 055
  5. ALEXA [Concomitant]
  6. DEPAKOTE [Concomitant]
     Indication: MOOD ALTERED
  7. KLONOPIN [Concomitant]
  8. CLOZARIL [Concomitant]
  9. INVEGA [Concomitant]
  10. PSYCHIATRIC MEDICATION [Concomitant]

REACTIONS (2)
  - DIZZINESS [None]
  - PRESYNCOPE [None]
